FAERS Safety Report 8664801 (Version 2)
Quarter: 2012Q4

REPORT INFORMATION
  Report Type: Report from Study
  Country: DE (occurrence: DE)
  Receive Date: 20120713
  Receipt Date: 20121101
  Transmission Date: 20130627
  Serious: Yes (Hospitalization)
  Sender: FDA-Public Use
  Company Number: DE-ABBOTT-12P-062-0953730-00

PATIENT
  Age: 15 Year
  Sex: Female
  Weight: 50 kg

DRUGS (4)
  1. HUMIRA 40 MG/ 0.8 ML PRE-FILLED SYRINGE [Suspect]
     Indication: JUVENILE ARTHRITIS
     Route: 058
     Dates: start: 20120608
  2. NAPROXEN [Suspect]
     Indication: JUVENILE ARTHRITIS
     Dosage: 750 mg daily
     Route: 048
     Dates: start: 201202, end: 201206
  3. DECORTIN [Suspect]
     Indication: JUVENILE ARTHRITIS
     Dosage: 10 mg daily
     Dates: start: 201202, end: 201207
  4. SULFASALAZINE [Suspect]
     Indication: JUVENILE ARTHRITIS
     Dosage: 2000 mg daily
     Dates: start: 201202

REACTIONS (1)
  - Anxiety [Not Recovered/Not Resolved]
